FAERS Safety Report 8048739-3 (Version None)
Quarter: 2012Q1

REPORT INFORMATION
  Report Type: 
  Country: None (occurrence: None)
  Receive Date: 20120117
  Receipt Date: 20120105
  Transmission Date: 20120608
  Serious: Yes (Other)
  Sender: FDA-Public Use
  Company Number: US-BAYER-2012-003213

PATIENT
  Age: 87 Year
  Sex: Female
  Weight: 82.54 kg

DRUGS (1)
  1. MAGNESIUM HYDROXIDE TAB [Suspect]
     Indication: CONSTIPATION
     Dosage: 2 TABLESPOONS TWICE A WEEK, BOTTLE SIZE 26OZ
     Dates: start: 20100101

REACTIONS (2)
  - DRUG DEPENDENCE [None]
  - FEELING ABNORMAL [None]
